FAERS Safety Report 7753847-8 (Version None)
Quarter: 2011Q3

REPORT INFORMATION
  Report Type: 
  Country: None (occurrence: None)
  Receive Date: 20110915
  Receipt Date: 20110901
  Transmission Date: 20111222
  Serious: Yes (Other)
  Sender: FDA-Public Use
  Company Number: US-BAYER-2011-064918

PATIENT
  Age: 65 Year
  Sex: Female
  Weight: 70 kg

DRUGS (10)
  1. ASPIRIN [Suspect]
     Indication: ANALGESIC THERAPY
     Dosage: 1 DF, ONCE
     Route: 048
  2. VITAMIN B COMPLEX CAP [Concomitant]
  3. LISINOPRIL [Concomitant]
  4. VITAMIN D [Concomitant]
  5. FISH OIL [Concomitant]
  6. ASPIRIN [Concomitant]
  7. LIPITOR [Concomitant]
  8. TRAVATAN [Concomitant]
  9. CALCIUM CARBONATE [Concomitant]
  10. VITAMIN E [Concomitant]

REACTIONS (4)
  - FOREIGN BODY [None]
  - FEAR [None]
  - APHAGIA [None]
  - DYSPNOEA [None]
